APPROVED DRUG PRODUCT: LEVONORGESTREL
Active Ingredient: LEVONORGESTREL
Strength: 0.75MG
Dosage Form/Route: TABLET;ORAL
Application: A090740 | Product #001
Applicant: L PERRIGO CO
Approved: Dec 30, 2010 | RLD: No | RS: No | Type: DISCN